FAERS Safety Report 11344878 (Version 1)
Quarter: 2015Q3

REPORT INFORMATION
  Report Type: Spontaneous
  Country: None (occurrence: None)
  Receive Date: 20150805
  Receipt Date: 20150805
  Transmission Date: 20151125
  Serious: No
  Sender: FDA-Public Use
  Company Number: None

PATIENT
  Age: 37 Year
  Sex: Female
  Weight: 58.97 kg

DRUGS (1)
  1. SINUTAB SINUS MAXIMUM STRENGTH [Suspect]
     Active Substance: ACETAMINOPHEN\PHENYLEPHRINE HYDROCHLORIDE

REACTIONS (3)
  - Palpitations [None]
  - Nervousness [None]
  - Middle insomnia [None]

NARRATIVE: CASE EVENT DATE: 20150803
